FAERS Safety Report 5602002-6 (Version None)
Quarter: 2008Q1

REPORT INFORMATION
  Report Type: 
  Country: None (occurrence: None)
  Receive Date: 20080118
  Receipt Date: 20080110
  Transmission Date: 20080703
  Serious: Yes (Other)
  Sender: FDA-Public Use
  Company Number: WAES 0801USA02461

PATIENT
  Age: 70 Year
  Sex: Female

DRUGS (4)
  1. ZETIA [Suspect]
     Indication: HYPERCHOLESTEROLAEMIA
     Dosage: 10 MG/DAILY PO
     Route: 048
     Dates: start: 20071029, end: 20071029
  2. THEOPHYLLINE [Concomitant]
  3. FLUTICASONE PROPIONATE (+) SALMETEROL XI [Concomitant]
  4. FUDOSTEINE [Concomitant]

REACTIONS (2)
  - DRUG ERUPTION [None]
  - PRURITUS [None]
